FAERS Safety Report 9000955 (Version 3)
Quarter: 2013Q1

REPORT INFORMATION
  Report Type: Spontaneous
  Country: IT (occurrence: None)
  Receive Date: 20121226
  Receipt Date: 20130128
  Transmission Date: 20140127
  Serious: Yes (Hospitalization)
  Sender: FDA-Public Use
  Company Number: DSA_61542_2012

PATIENT
  Sex: 0

DRUGS (14)
  1. 5-FU [Suspect]
     Indication: COLORECTAL CANCER METASTATIC
     Route: 042
     Dates: start: 20121126, end: 20121126
  2. AFLIBERCEPT (AFLIBERCEPT) SOLUTION FOR INJECTION [Suspect]
     Indication: COLORECTAL CANCER METASTATIC
     Route: 042
     Dates: start: 20121126, end: 20121126
  3. IRINOTECAN (IRINOTECAN) [Suspect]
     Indication: COLORECTAL CANCER METASTATIC
     Route: 042
     Dates: start: 20121126, end: 20121126
  4. LEUCOVORIN /00566701/ [Suspect]
     Indication: COLORECTAL CANCER METASTATIC
     Route: 042
     Dates: start: 20121126, end: 20121126
  5. ANTIBIOTICS [Concomitant]
  6. PARACETAMOL [Concomitant]
  7. ALL OTHER THERAPEUTIC PRODUCTS (ALL OTHER THERAPEUTIC PRODUCTS) [Concomitant]
  8. OXYGEN [Concomitant]
  9. CORTICOSTEROIDS [Concomitant]
  10. SEROTONIN ANTAGONISTS [Concomitant]
  11. ATROPIN /00002801/ [Concomitant]
  12. METOCLOPRAMIDE [Concomitant]
  13. XELODA [Suspect]
  14. BEVACIZUMAB [Suspect]

REACTIONS (4)
  - Fatigue [None]
  - Pyrexia [None]
  - Asthenia [None]
  - Bronchitis [None]
